FAERS Safety Report 4896221-4 (Version None)
Quarter: 2006Q1

REPORT INFORMATION
  Report Type: 
  Country: None (occurrence: None)
  Receive Date: 20060126
  Receipt Date: 20060120
  Transmission Date: 20060701
  Serious: Yes (Hospitalization)
  Sender: FDA-Public Use
  Company Number: 2005BI004585

PATIENT
  Age: 40 Year
  Sex: Female

DRUGS (1)
  1. AVONEX [Suspect]
     Indication: MULTIPLE SCLEROSIS
     Dosage: 30 UG;QW;IM
     Route: 030
     Dates: start: 20020927

REACTIONS (6)
  - BACK PAIN [None]
  - CELLULITIS [None]
  - INJECTION SITE INFECTION [None]
  - INSOMNIA [None]
  - LIP PAIN [None]
  - PAIN IN EXTREMITY [None]
